FAERS Safety Report 4487979-7 (Version None)
Quarter: 2004Q4

REPORT INFORMATION
  Report Type: 
  Country: None (occurrence: None)
  Receive Date: 20041026
  Receipt Date: 20041012
  Transmission Date: 20050328
  Serious: Yes (Death, Hospitalization)
  Sender: FDA-Public Use
  Company Number: USA040669350

PATIENT
  Age: 65 Year
  Sex: Female

DRUGS (1)
  1. FORTEO [Suspect]
     Indication: OSTEOPOROSIS
     Dosage: 20 UG DAY
     Dates: start: 20030829, end: 20040521

REACTIONS (4)
  - ACUTE RESPIRATORY FAILURE [None]
  - DYSPNOEA [None]
  - PNEUMONIA PNEUMOCOCCAL [None]
  - WEIGHT DECREASED [None]
